FAERS Safety Report 7794514-4 (Version None)
Quarter: 2011Q4

REPORT INFORMATION
  Report Type: 
  Country: None (occurrence: None)
  Receive Date: 20111004
  Receipt Date: 20110927
  Transmission Date: 20120403
  Serious: Yes (Life-Threatening, Disabling)
  Sender: FDA-Public Use
  Company Number: DE-SANOFI-AVENTIS-2010SA057286

PATIENT
  Age: 82 Year
  Sex: Male
  Weight: 98 kg

DRUGS (3)
  1. MULTAQ [Suspect]
     Indication: ATRIAL FIBRILLATION
     Dosage: 400MG 2XTAGL
     Route: 048
     Dates: start: 20100113, end: 20100913
  2. MARCUMAR [Concomitant]
     Indication: ATRIAL FIBRILLATION
     Route: 065
  3. PERINDOPRIL ERBUMINE [Concomitant]
     Route: 065

REACTIONS (6)
  - AXONAL NEUROPATHY [None]
  - POLYNEUROPATHY [None]
  - MUSCLE ATROPHY [None]
  - DECREASED IMMUNE RESPONSIVENESS [None]
  - GOUT [None]
  - BACTERIAL INFECTION [None]
